FAERS Safety Report 6123645-X (Version None)
Quarter: 2009Q1

REPORT INFORMATION
  Report Type: 
  Country: None (occurrence: None)
  Receive Date: 20090317
  Receipt Date: 20090317
  Transmission Date: 20090719
  Serious: No
  Sender: FDA-Public Use
  Company Number: None

PATIENT
  Sex: Male
  Weight: 63.5036 kg

DRUGS (2)
  1. AZITHROMYCIN [Suspect]
     Indication: EAR INFECTION
     Dosage: 40 PILLS 4TXS DAILY PO
     Route: 048
     Dates: start: 20090310, end: 20090315
  2. AZITHROMYCIN [Suspect]
     Indication: SINUSITIS
     Dosage: 40 PILLS 4TXS DAILY PO
     Route: 048
     Dates: start: 20090310, end: 20090315

REACTIONS (6)
  - ABDOMINAL PAIN [None]
  - ANOREXIA [None]
  - DIARRHOEA [None]
  - DRUG DISPENSING ERROR [None]
  - NAUSEA [None]
  - WRONG DRUG ADMINISTERED [None]
